FAERS Safety Report 14846943 (Version 1)
Quarter: 2018Q2

REPORT INFORMATION
  Report Type: Spontaneous
  Country: US (occurrence: US)
  Receive Date: 20180418
  Receipt Date: 20180418
  Transmission Date: 20180711
  Serious: Yes (Hospitalization)
  Sender: FDA-Public Use
  Company Number: None

PATIENT
  Age: 64 Year
  Sex: Female

DRUGS (7)
  1. HUMIRA [Suspect]
     Active Substance: ADALIMUMAB
     Indication: RHEUMATOID ARTHRITIS
     Route: 058
     Dates: start: 20160817
  2. ATEN/CHLOR [Concomitant]
  3. BUPROPRION [Concomitant]
     Active Substance: BUPROPION
  4. PREDNISONE. [Concomitant]
     Active Substance: PREDNISONE
  5. CELECOXIB. [Concomitant]
     Active Substance: CELECOXIB
  6. DESLORATADINE. [Concomitant]
     Active Substance: DESLORATADINE
  7. LEFLUONOMIDE [Concomitant]
     Active Substance: LEFLUNOMIDE

REACTIONS (2)
  - Therapy cessation [None]
  - Arthritis infective [None]

NARRATIVE: CASE EVENT DATE: 2018
